FAERS Safety Report 14720018 (Version 1)
Quarter: 2018Q2

REPORT INFORMATION
  Report Type: Report from Study
  Country: US (occurrence: US)
  Receive Date: 20180405
  Receipt Date: 20180405
  Transmission Date: 20180711
  Serious: Yes (Hospitalization, Other)
  Sender: FDA-Public Use
  Company Number: US-GILEAD-2018-0330157

PATIENT
  Age: 70 Year
  Sex: Female

DRUGS (13)
  1. ASPIRIN                            /00002701/ [Concomitant]
     Active Substance: ASPIRIN
  2. KLONOPIN [Concomitant]
     Active Substance: CLONAZEPAM
  3. MIDODRINE [Concomitant]
     Active Substance: MIDODRINE
  4. BENADRYL ALLERGY [Concomitant]
     Active Substance: DIPHENHYDRAMINE HYDROCHLORIDE
  5. FOLIC ACID. [Concomitant]
     Active Substance: FOLIC ACID
  6. RENVELA [Concomitant]
     Active Substance: SEVELAMER CARBONATE
  7. SEROQUEL [Concomitant]
     Active Substance: QUETIAPINE FUMARATE
  8. TYLENOL WITH CODEINE [Concomitant]
     Active Substance: ACETAMINOPHEN\CODEINE PHOSPHATE
  9. VITAMIN D [Concomitant]
     Active Substance: CHOLECALCIFEROL
  10. ADCIRCA [Suspect]
     Active Substance: TADALAFIL
     Indication: PULMONARY HYPERTENSION
     Dosage: 40 MG, QD
     Route: 065
     Dates: start: 20160811
  11. GABAPENTIN. [Concomitant]
     Active Substance: GABAPENTIN
  12. VITAMIN C [Concomitant]
     Active Substance: ASCORBIC ACID
  13. AMBRISENTAN [Suspect]
     Active Substance: AMBRISENTAN
     Indication: PULMONARY HYPERTENSION
     Dosage: 10 MG, QD
     Route: 065
     Dates: start: 20160811

REACTIONS (3)
  - Fluid retention [Unknown]
  - Hypotension [Unknown]
  - Atrial fibrillation [Unknown]
